FAERS Safety Report 6933904-6 (Version None)
Quarter: 2010Q3

REPORT INFORMATION
  Report Type: 
  Country: None (occurrence: None)
  Receive Date: 20100820
  Receipt Date: 20100810
  Transmission Date: 20110219
  Serious: Yes (Other)
  Sender: FDA-Public Use
  Company Number: JP-ROCHE-713219

PATIENT
  Sex: Male
  Weight: 65 kg

DRUGS (8)
  1. XELODA [Suspect]
     Indication: COLON CANCER METASTATIC
     Dosage: NOTE: IT IS ONE ADMINISTERING WEEKLY HOLIDAY MEDICINE FOR TWO WEEKS
     Route: 048
     Dates: start: 20100118, end: 20100101
  2. XELODA [Suspect]
     Dosage: NOTE: IT IS ONE ADMINISTERING WEEKLY HOLIDAY MEDICINE FOR TWO WEEKS
     Route: 048
     Dates: start: 20100317, end: 20100101
  3. XELODA [Suspect]
     Route: 048
     Dates: start: 20100628, end: 20100628
  4. ELPLAT [Suspect]
     Indication: COLON CANCER METASTATIC
     Dosage: DOSE DECREASED
     Route: 041
     Dates: start: 20100118, end: 20100516
  5. ELPLAT [Suspect]
     Dosage: DOSE DECREASED
     Route: 041
     Dates: start: 20100517, end: 20100627
  6. ELPLAT [Suspect]
     Route: 041
     Dates: start: 20100628, end: 20100628
  7. FERROMIA [Concomitant]
     Route: 048
     Dates: start: 20091201
  8. PYDOXAL [Concomitant]
     Dosage: DOSE FORM: UNCERTAINTY
     Route: 065
     Dates: start: 20100517

REACTIONS (2)
  - HYPOAESTHESIA [None]
  - JOINT CONTRACTURE [None]
